FAERS Safety Report 18632854 (Version 1)
Quarter: 2020Q4

REPORT INFORMATION
  Report Type: Other
  Country: US (occurrence: US)
  Receive Date: 20201218
  Receipt Date: 20201218
  Transmission Date: 20210114
  Serious: Yes (Other)
  Sender: FDA-Public Use
  Company Number: US-ROCHE-2729629

PATIENT
  Age: 31 Year
  Sex: Female
  Weight: 103.06 kg

DRUGS (1)
  1. OCREVUS [Suspect]
     Active Substance: OCRELIZUMAB
     Indication: RELAPSING MULTIPLE SCLEROSIS
     Dosage: RECEIVED TWO HALF DOSES OF 300 MG EACH
     Route: 042
     Dates: start: 20200601

REACTIONS (8)
  - Urogenital trichomoniasis [Not Recovered/Not Resolved]
  - Multiple sclerosis relapse [Unknown]
  - Pain [Not Recovered/Not Resolved]
  - Ocular discomfort [Unknown]
  - Vision blurred [Unknown]
  - Vitreous floaters [Not Recovered/Not Resolved]
  - Urinary tract infection [Recovered/Resolved]
  - Renal mass [Unknown]

NARRATIVE: CASE EVENT DATE: 202012
